FAERS Safety Report 5337159-8 (Version None)
Quarter: 2007Q2

REPORT INFORMATION
  Report Type: 
  Country: None (occurrence: None)
  Receive Date: 20070529
  Receipt Date: 20070517
  Transmission Date: 20071010
  Serious: Yes (Hospitalization)
  Sender: FDA-Public Use
  Company Number: CZ-PFIZER INC-2006085287

PATIENT
  Sex: Female
  Weight: 68 kg

DRUGS (11)
  1. SU-011,248 [Suspect]
     Indication: METASTATIC RENAL CELL CARCINOMA
     Route: 048
  2. ALPRAZOLAM [Concomitant]
     Route: 048
  3. ENOXAPARIN SODIUM [Concomitant]
     Route: 058
     Dates: start: 20060626, end: 20060707
  4. CARBAMAZEPINE [Concomitant]
     Route: 048
     Dates: start: 20060613
  5. METOCLOPRAMIDE [Concomitant]
     Route: 048
     Dates: start: 20060626, end: 20060628
  6. LACTULOSE [Concomitant]
     Route: 048
     Dates: start: 20060703
  7. CLODRONATE DISODIUM [Concomitant]
     Route: 048
     Dates: start: 20060626
  8. CALCITONIN-SALMON [Concomitant]
     Route: 048
     Dates: start: 20060626
  9. I.V. SOLUTIONS [Concomitant]
     Route: 042
     Dates: start: 20060626
  10. SYNTOPHYLLIN [Concomitant]
     Route: 048
  11. NIMESULIDE [Concomitant]
     Route: 048

REACTIONS (2)
  - DEHYDRATION [None]
  - FLUID IMBALANCE [None]
